FAERS Safety Report 11038398 (Version 1)
Quarter: 2015Q2

REPORT INFORMATION
  Report Type: Spontaneous
  Country: US (occurrence: US)
  Receive Date: 20150416
  Receipt Date: 20150416
  Transmission Date: 20150821
  Serious: No
  Sender: FDA-Public Use
  Company Number: US-BAYER-2015-136368

PATIENT
  Age: 50 Year
  Sex: Female
  Weight: 115 kg

DRUGS (3)
  1. CHILDRENS CHEWABLE VITAMINS [Concomitant]
     Indication: VITAMIN SUPPLEMENTATION
     Dosage: UNK
  2. CLARITIN [Suspect]
     Active Substance: LORATADINE
     Indication: SEASONAL ALLERGY
     Dosage: TWO OR THREE IN ONE DAY
     Route: 048
     Dates: start: 201504
  3. CLARITIN [Suspect]
     Active Substance: LORATADINE
     Indication: SEASONAL ALLERGY
     Dosage: 1 DOSE, UNK
     Route: 048
     Dates: start: 201504

REACTIONS (2)
  - Drug ineffective [Unknown]
  - Extra dose administered [None]

NARRATIVE: CASE EVENT DATE: 201504
